FAERS Safety Report 21917176 (Version 1)
Quarter: 2023Q1

REPORT INFORMATION
  Report Type: Spontaneous
  Country: BE (occurrence: BE)
  Receive Date: 20230126
  Receipt Date: 20230126
  Transmission Date: 20230417
  Serious: Yes (Hospitalization, Other)
  Sender: FDA-Public Use
  Company Number: BE-MLMSERVICE-20230109-4028677-1

PATIENT
  Age: 46 Year
  Sex: Male

DRUGS (2)
  1. GEMCITABINE HYDROCHLORIDE [Interacting]
     Active Substance: GEMCITABINE HYDROCHLORIDE
     Indication: Pancreatic carcinoma stage IV
     Dosage: 27500 MG, CYCLICAL
     Route: 065
  2. PACLITAXEL [Interacting]
     Active Substance: PACLITAXEL
     Indication: Pancreatic carcinoma stage IV
     Dosage: 3437.5 MG, CYCLICAL
     Route: 065

REACTIONS (4)
  - Reticulocyte count decreased [Recovered/Resolved]
  - Drug interaction [Recovered/Resolved]
  - Thrombotic microangiopathy [Recovered/Resolved]
  - Myelosuppression [Recovered/Resolved]
